FAERS Safety Report 7249786-1 (Version None)
Quarter: 2011Q1

REPORT INFORMATION
  Report Type: 
  Country: None (occurrence: None)
  Receive Date: 20110128
  Receipt Date: 20100322
  Transmission Date: 20110831
  Serious: No
  Sender: FDA-Public Use
  Company Number: A0852511A

PATIENT
  Sex: Male

DRUGS (1)
  1. WELLBUTRIN [Suspect]
     Route: 065

REACTIONS (3)
  - MOOD ALTERED [None]
  - ABNORMAL BEHAVIOUR [None]
  - IRRITABILITY [None]
